FAERS Safety Report 18485642 (Version 1)
Quarter: 2020Q4

REPORT INFORMATION
  Report Type: Report from Study
  Country: US (occurrence: US)
  Receive Date: 20201110
  Receipt Date: 20201110
  Transmission Date: 20210114
  Serious: Yes (Death, Other)
  Sender: FDA-Public Use
  Company Number: US-GLAXOSMITHKLINE-US2020AMR148618

PATIENT
  Sex: Female

DRUGS (3)
  1. NIRAPARIB [Suspect]
     Active Substance: NIRAPARIB
     Indication: OVARIAN CANCER
     Dosage: 200 MG, QD, OTHER SOURCE
     Dates: start: 20200701
  2. NIRAPARIB [Suspect]
     Active Substance: NIRAPARIB
     Dosage: 200 MG, QD
     Dates: start: 20200803
  3. NIRAPARIB [Suspect]
     Active Substance: NIRAPARIB
     Dosage: 200 MG, QD
     Dates: start: 20200803

REACTIONS (7)
  - Death [Fatal]
  - Fatigue [Unknown]
  - Decreased appetite [Recovering/Resolving]
  - Decreased activity [Unknown]
  - Dry mouth [Recovering/Resolving]
  - Constipation [Recovered/Resolved]
  - Haemoglobin decreased [Unknown]
